FAERS Safety Report 4490369-4 (Version None)
Quarter: 2004Q4

REPORT INFORMATION
  Report Type: 
  Country: None (occurrence: None)
  Receive Date: 20041102
  Receipt Date: 20041021
  Transmission Date: 20050328
  Serious: Yes (Other)
  Sender: FDA-Public Use
  Company Number: US-BRISTOL-MYERS SQUIBB COMPANY-12746673

PATIENT
  Age: 16 Year

DRUGS (1)
  1. VIDEX EC [Suspect]
     Dates: start: 20021101

REACTIONS (4)
  - ARTHRALGIA [None]
  - BLOOD ALKALINE PHOSPHATASE INCREASED [None]
  - HYPOCALCAEMIA [None]
  - PARAESTHESIA [None]
